FAERS Safety Report 13753968 (Version 1)
Quarter: 2017Q3

REPORT INFORMATION
  Report Type: Spontaneous
  Country: SE (occurrence: SE)
  Receive Date: 20170714
  Receipt Date: 20170714
  Transmission Date: 20171127
  Serious: Yes (Hospitalization)
  Sender: FDA-Public Use
  Company Number: SE-TEVA-786676ISR

PATIENT
  Age: 17 Year
  Sex: Female

DRUGS (1)
  1. VENLAFAXINE [Suspect]
     Active Substance: VENLAFAXINE HYDROCHLORIDE

REACTIONS (4)
  - Lactation disorder [Recovered/Resolved]
  - Blood prolactin increased [Recovered/Resolved]
  - Muscle spasms [Recovered/Resolved]
  - Breast discomfort [Recovered/Resolved]
